FAERS Safety Report 16858493 (Version 1)
Quarter: 2019Q3

REPORT INFORMATION
  Report Type: Spontaneous
  Country: GB (occurrence: GB)
  Receive Date: 20190926
  Receipt Date: 20190926
  Transmission Date: 20191005
  Serious: Yes (Death)
  Sender: FDA-Public Use
  Company Number: GB-MYLANLABS-2019M1090395

PATIENT
  Sex: Female

DRUGS (1)
  1. CLOZARIL [Suspect]
     Active Substance: CLOZAPINE
     Indication: SCHIZOPHRENIA
     Dosage: UNK
     Route: 048
     Dates: start: 20140922

REACTIONS (5)
  - Hyperkalaemia [Fatal]
  - Acute kidney injury [Fatal]
  - Pneumonia [Fatal]
  - Parkinson^s disease [Fatal]
  - Asthenia [Fatal]
